FAERS Safety Report 11868601 (Version 1)
Quarter: 2015Q4

REPORT INFORMATION
  Report Type: Report from Study
  Country: JP (occurrence: JP)
  Receive Date: 20151225
  Receipt Date: 20151225
  Transmission Date: 20160305
  Serious: Yes (Life-Threatening, Hospitalization, Other)
  Sender: FDA-Public Use
  Company Number: JP-ROCHE-1677318

PATIENT
  Age: 78 Year
  Sex: Male

DRUGS (9)
  1. CALCIUM LEVOFOLINATE [Suspect]
     Active Substance: LEVOLEUCOVORIN CALCIUM
     Indication: COLON CANCER
  2. ELPLAT [Suspect]
     Active Substance: OXALIPLATIN
     Indication: COLON CANCER
     Dosage: DOSAGE IS UNCERTAIN.
     Route: 041
     Dates: start: 2015
  3. CALCIUM LEVOFOLINATE [Suspect]
     Active Substance: LEVOLEUCOVORIN CALCIUM
     Indication: COLON CANCER
     Route: 041
     Dates: start: 20150609, end: 20151203
  4. 5-FU [Suspect]
     Active Substance: FLUOROURACIL
     Indication: COLON CANCER
     Route: 041
     Dates: start: 20150609, end: 20151203
  5. 5-FU [Suspect]
     Active Substance: FLUOROURACIL
     Indication: COLON CANCER
  6. BEVACIZUMAB [Suspect]
     Active Substance: BEVACIZUMAB
     Indication: COLON CANCER
     Route: 041
     Dates: start: 20150609, end: 20151203
  7. 5-FU [Suspect]
     Active Substance: FLUOROURACIL
     Indication: COLON CANCER
     Route: 040
     Dates: start: 20150609, end: 20151203
  8. BEVACIZUMAB [Suspect]
     Active Substance: BEVACIZUMAB
     Indication: COLON CANCER
  9. 5-FU [Suspect]
     Active Substance: FLUOROURACIL
     Indication: COLON CANCER

REACTIONS (3)
  - Peritonitis [Unknown]
  - Pneumonia aspiration [Not Recovered/Not Resolved]
  - Gastric perforation [Not Recovered/Not Resolved]

NARRATIVE: CASE EVENT DATE: 20151207
